FAERS Safety Report 9010416 (Version 2)
Quarter: 2013Q1

REPORT INFORMATION
  Report Type: Report from Study
  Country: JP (occurrence: JP)
  Receive Date: 20130109
  Receipt Date: 20130312
  Transmission Date: 20140127
  Serious: Yes (Hospitalization, Other)
  Sender: FDA-Public Use
  Company Number: JP-ROCHE-680507

PATIENT
  Age: 76 Year
  Sex: Female

DRUGS (55)
  1. TOCILIZUMAB [Suspect]
     Indication: RHEUMATOID ARTHRITIS
     Route: 041
     Dates: start: 20090608, end: 20090608
  2. TOCILIZUMAB [Suspect]
     Route: 041
     Dates: start: 20090707, end: 20090707
  3. TOCILIZUMAB [Suspect]
     Route: 041
     Dates: start: 20090804, end: 20090804
  4. TOCILIZUMAB [Suspect]
     Route: 041
     Dates: start: 20090901, end: 20090901
  5. TOCILIZUMAB [Suspect]
     Route: 041
     Dates: start: 20090929, end: 20090929
  6. TOCILIZUMAB [Suspect]
     Route: 041
     Dates: start: 20091027, end: 20091027
  7. TOCILIZUMAB [Suspect]
     Route: 041
     Dates: start: 20091124, end: 20091124
  8. TOCILIZUMAB [Suspect]
     Route: 041
     Dates: start: 20091222, end: 20091222
  9. TOCILIZUMAB [Suspect]
     Route: 041
     Dates: start: 20100119, end: 20100119
  10. TOCILIZUMAB [Suspect]
     Route: 041
     Dates: start: 20100216, end: 20100216
  11. TOCILIZUMAB [Suspect]
     Route: 041
     Dates: start: 20100316, end: 20100316
  12. TOCILIZUMAB [Suspect]
     Route: 041
     Dates: start: 20100413, end: 20100413
  13. TOCILIZUMAB [Suspect]
     Route: 041
     Dates: start: 20100511, end: 20100511
  14. TOCILIZUMAB [Suspect]
     Route: 041
     Dates: start: 20100706, end: 20100706
  15. TOCILIZUMAB [Suspect]
     Route: 041
     Dates: start: 20100803, end: 20100803
  16. METHOTREXATE [Suspect]
     Indication: RHEUMATOID ARTHRITIS
     Route: 048
     Dates: start: 200907, end: 200907
  17. METHOTREXATE [Suspect]
     Route: 048
     Dates: start: 200907, end: 20090803
  18. METHOTREXATE [Suspect]
     Route: 048
     Dates: start: 20090804, end: 20090929
  19. METHOTREXATE [Suspect]
     Route: 048
     Dates: start: 20091007, end: 20091007
  20. METHOTREXATE [Suspect]
     Route: 048
     Dates: start: 20091010, end: 20100608
  21. METHOTREXATE [Suspect]
     Route: 048
     Dates: start: 20100609, end: 2010
  22. PREDNISOLONE [Suspect]
     Indication: RHEUMATOID ARTHRITIS
     Dosage: FORM: PERORAL AGENT
     Route: 048
     Dates: end: 20090611
  23. PREDNISOLONE [Suspect]
     Dosage: FORM: PERORAL AGENT
     Route: 048
     Dates: start: 20090612, end: 20090614
  24. PREDNISOLONE [Suspect]
     Dosage: FORM: PERORAL AGENT
     Route: 048
     Dates: start: 20090615, end: 20090617
  25. PREDNISOLONE [Suspect]
     Dosage: FORM: PERORAL AGENT
     Route: 048
     Dates: start: 20090618, end: 20090629
  26. PREDNISOLONE [Suspect]
     Dosage: FORM: PERORAL AGENT
     Route: 048
     Dates: start: 20090630, end: 20090706
  27. PREDNISOLONE [Suspect]
     Dosage: FORM: PERORAL AGENT
     Route: 048
     Dates: start: 20090930, end: 20090930
  28. PREDNISOLONE [Suspect]
     Dosage: FORM: PERORAL AGENT
     Route: 048
     Dates: start: 20091001, end: 20091004
  29. PREDNISOLONE [Suspect]
     Dosage: FORM: PERORAL AGENT
     Route: 048
     Dates: start: 20091005, end: 20091009
  30. PREDNISOLONE [Suspect]
     Dosage: FORM: PERORAL AGENT
     Route: 048
     Dates: start: 20091010, end: 20091027
  31. PREDNISOLONE [Suspect]
     Dosage: FORM: PERORAL AGENT
     Route: 048
     Dates: start: 20091028, end: 20100111
  32. PREDNISOLONE [Suspect]
     Dosage: FORM: PERORAL AGENT
     Route: 048
     Dates: start: 2010
  33. TACROLIMUS HYDRATE [Suspect]
     Indication: RHEUMATOID ARTHRITIS
     Route: 048
     Dates: end: 20090929
  34. TACROLIMUS HYDRATE [Suspect]
     Route: 048
     Dates: start: 2009
  35. ISCOTIN [Concomitant]
     Dosage: FORM: PERORAL AGENT
     Route: 048
  36. ROCALTROL [Concomitant]
     Route: 048
  37. METHYCOBAL [Concomitant]
     Dosage: FORM: PERORAL AGENT
     Route: 048
     Dates: start: 20091208, end: 20100215
  38. SULFAMETHOXAZOLE/TRIMETHOPRIM [Concomitant]
     Route: 048
  39. SIMVASTATIN [Concomitant]
     Dosage: DRUG REPORTED AS LIPOZART
     Route: 048
  40. MAGMITT [Concomitant]
     Route: 048
  41. PARIET [Concomitant]
     Route: 048
  42. BONALON [Concomitant]
     Dosage: DRUG REPORTED AS BONALON 35
     Route: 048
  43. SALAZOSULFAPYRIDINE [Concomitant]
     Route: 048
  44. SALAZOSULFAPYRIDINE [Concomitant]
     Route: 048
     Dates: start: 20090609, end: 20090609
  45. FOLINIC ACID [Concomitant]
     Route: 048
  46. MICARDIS [Concomitant]
     Route: 048
     Dates: start: 20100302, end: 20100316
  47. MICARDIS [Concomitant]
     Route: 048
  48. MEDROL [Concomitant]
     Route: 048
  49. BREDININ [Concomitant]
     Route: 048
  50. ALFAROL [Concomitant]
     Route: 048
  51. LIPOVAS [Concomitant]
     Route: 048
  52. OMEPRAL [Concomitant]
     Route: 048
  53. URALYT [Concomitant]
     Route: 048
  54. ALLEGRA [Concomitant]
  55. MOHRUS [Concomitant]
     Route: 048

REACTIONS (13)
  - Pneumonia [Recovering/Resolving]
  - Pancytopenia [Recovering/Resolving]
  - Cardiac failure [Recovering/Resolving]
  - Diabetes mellitus [Recovering/Resolving]
  - Subdural haematoma [Unknown]
  - Bone marrow failure [Recovered/Resolved]
  - White blood cell count decreased [Not Recovered/Not Resolved]
  - Platelet count decreased [Unknown]
  - Fall [Unknown]
  - Contusion [Unknown]
  - Pneumonia [Recovering/Resolving]
  - Blood pressure increased [Not Recovered/Not Resolved]
  - Renal impairment [Recovered/Resolved]
